FAERS Safety Report 7974786-3 (Version None)
Quarter: 2011Q4

REPORT INFORMATION
  Report Type: 
  Country: None (occurrence: None)
  Receive Date: 20111213
  Receipt Date: 20111206
  Transmission Date: 20120403
  Serious: Yes (Hospitalization, Other)
  Sender: FDA-Public Use
  Company Number: PHEH2011US05845

PATIENT
  Sex: Female

DRUGS (7)
  1. AMBLEN [Concomitant]
  2. VITAMIN D [Concomitant]
  3. ADDERALL 5 [Concomitant]
  4. GILENYA [Suspect]
     Indication: MULTIPLE SCLEROSIS
     Dosage: 0.5 MG, QD
     Route: 048
     Dates: start: 20110131
  5. EFFEXOR [Concomitant]
  6. LEXAPRO [Concomitant]
  7. OXYBUTYNIN [Concomitant]

REACTIONS (2)
  - WHITE BLOOD CELL COUNT DECREASED [None]
  - TINEA INFECTION [None]
